FAERS Safety Report 20277941 (Version 1)
Quarter: 2022Q1

REPORT INFORMATION
  Report Type: Spontaneous
  Country: US (occurrence: US)
  Receive Date: 20220103
  Receipt Date: 20220103
  Transmission Date: 20220423
  Serious: No
  Sender: FDA-Public Use
  Company Number: US-SA-2021SA395160

PATIENT
  Sex: Male

DRUGS (1)
  1. DUPIXENT [Suspect]
     Active Substance: DUPILUMAB
     Indication: Dyshidrotic eczema
     Dosage: 300MG,QOW
     Route: 058
     Dates: start: 20210326

REACTIONS (4)
  - Muscle spasms [Unknown]
  - Chest discomfort [Unknown]
  - Unevaluable event [Unknown]
  - Product use in unapproved indication [Unknown]
